FAERS Safety Report 17830637 (Version 1)
Quarter: 2020Q2

REPORT INFORMATION
  Report Type: Spontaneous
  Country: US (occurrence: US)
  Receive Date: 20200527
  Receipt Date: 20200527
  Transmission Date: 20200714
  Serious: No
  Sender: FDA-Public Use
  Company Number: US-TARO-2019TAR00579

PATIENT
  Sex: Female

DRUGS (1)
  1. TERCONAZOLE VAGINAL CREAM 0.8% [Suspect]
     Active Substance: TERCONAZOLE

REACTIONS (3)
  - Drug ineffective [Unknown]
  - Product quality issue [Not Recovered/Not Resolved]
  - Underdose [Unknown]
